FAERS Safety Report 6267125-X (Version None)
Quarter: 2009Q3

REPORT INFORMATION
  Report Type: 
  Country: None (occurrence: None)
  Receive Date: 20090714
  Receipt Date: 20090713
  Transmission Date: 20100115
  Serious: Yes (Hospitalization)
  Sender: FDA-Public Use
  Company Number: US-PFIZER INC-2009225786

PATIENT
  Sex: Female

DRUGS (11)
  1. NEURONTIN [Suspect]
     Indication: PAIN PROPHYLAXIS
     Dosage: UNK
     Dates: start: 20090301, end: 20090501
  2. INTERFERON BETA-1A [Suspect]
     Indication: MULTIPLE SCLEROSIS
     Dosage: 44 UG, 3 IN 1 WEEK
     Route: 058
     Dates: start: 20091001
  3. CELEXA [Suspect]
     Indication: DEPRESSION
     Dosage: UNK
  4. REMERON [Concomitant]
     Indication: INSOMNIA
     Dosage: UNK
  5. DIAZEPAM [Concomitant]
     Indication: ANXIETY
     Dosage: UNK
  6. PROMETHAZINE [Concomitant]
     Indication: NAUSEA
     Dosage: UNK
  7. LORTAB [Concomitant]
     Indication: PAIN
     Dosage: UNK
  8. AMITRIPTYLINE [Concomitant]
     Indication: HEADACHE
     Dosage: UNK
  9. TRAMADOL [Concomitant]
     Dosage: UNK
  10. METHOCARBAMOL [Concomitant]
     Dosage: UNK
  11. IBUPROFEN [Concomitant]
     Indication: PREMEDICATION
     Dosage: UNK

REACTIONS (5)
  - FEELING HOT [None]
  - FLUSHING [None]
  - HYPERHIDROSIS [None]
  - INTESTINAL FUNCTIONAL DISORDER [None]
  - OVARIAN CYST [None]
